FAERS Safety Report 4816142-2 (Version None)
Quarter: 2005Q4

REPORT INFORMATION
  Report Type: 
  Country: None (occurrence: None)
  Receive Date: 20051026
  Receipt Date: 20051011
  Transmission Date: 20060501
  Serious: Yes (Death, Hospitalization)
  Sender: FDA-Public Use
  Company Number: USA050495672

PATIENT
  Age: 75 Year
  Sex: Male
  Weight: 60 kg

DRUGS (4)
  1. GEMZAR [Suspect]
     Indication: LUNG CANCER METASTATIC
     Dosage: 800 MG/M2/1 WEEK
  2. ALBUTEROL [Concomitant]
  3. SPIRIVA [Concomitant]
  4. TRAMADOL [Concomitant]

REACTIONS (16)
  - ABDOMINAL PAIN [None]
  - ANAEMIA [None]
  - ASTHENIA [None]
  - CHEST PAIN [None]
  - CHROMATURIA [None]
  - DEHYDRATION [None]
  - FALL [None]
  - GASTRITIS [None]
  - HYPOTENSION [None]
  - MASS [None]
  - METASTASES TO GASTROINTESTINAL TRACT [None]
  - PAIN [None]
  - PNEUMONIA [None]
  - SEPSIS [None]
  - SEPTIC SHOCK [None]
  - SINUS TACHYCARDIA [None]
